FAERS Safety Report 6225249-7 (Version None)
Quarter: 2009Q2

REPORT INFORMATION
  Report Type: 
  Country: None (occurrence: None)
  Receive Date: 20090612
  Receipt Date: 20090519
  Transmission Date: 20091009
  Serious: No
  Sender: FDA-Public Use
  Company Number: US-ABBOTT-09P-163-0568005-00

PATIENT
  Sex: Female
  Weight: 149.82 kg

DRUGS (1)
  1. HUMIRA [Suspect]
     Indication: CROHN'S DISEASE
     Dates: start: 20090224, end: 20090410

REACTIONS (8)
  - EYE SWELLING [None]
  - FATIGUE [None]
  - HEADACHE [None]
  - NAUSEA [None]
  - OEDEMA PERIPHERAL [None]
  - RASH [None]
  - SINUSITIS [None]
  - VISUAL IMPAIRMENT [None]
